FAERS Safety Report 24677131 (Version 2)
Quarter: 2024Q4

REPORT INFORMATION
  Report Type: Spontaneous
  Country: KR (occurrence: KR)
  Receive Date: 20241129
  Receipt Date: 20241205
  Transmission Date: 20250114
  Serious: Yes (Hospitalization, Other)
  Sender: ALKEM
  Company Number: KR-ALKEM LABORATORIES LIMITED-KR-ALKEM-2024-24954

PATIENT
  Age: 55 Year
  Sex: Male

DRUGS (2)
  1. MYCOPHENOLATE MOFETIL [Interacting]
     Active Substance: MYCOPHENOLATE MOFETIL
     Indication: Immunosuppressant drug therapy
     Dosage: 100 MILLIGRAM, BID
     Route: 065
  2. ACYCLOVIR [Interacting]
     Active Substance: ACYCLOVIR
     Indication: Herpes ophthalmic
     Dosage: 400 MILLIGRAM, BID
     Route: 048

REACTIONS (4)
  - Generalised tonic-clonic seizure [Recovered/Resolved]
  - Drug interaction [Unknown]
  - Neurotoxicity [Unknown]
  - Transplant rejection [Unknown]
